FAERS Safety Report 8051133-2 (Version None)
Quarter: 2012Q1

REPORT INFORMATION
  Report Type: 
  Country: None (occurrence: None)
  Receive Date: 20120117
  Receipt Date: 20120112
  Transmission Date: 20120608
  Serious: Yes (Hospitalization, Other)
  Sender: FDA-Public Use
  Company Number: PHEH2004US014159

PATIENT
  Sex: Male
  Weight: 63.492 kg

DRUGS (83)
  1. ATROPINE [Concomitant]
  2. FAMOTIDINE [Concomitant]
  3. CYANOCOBALAMIN [Concomitant]
  4. NYSTATIN [Concomitant]
  5. THALIDOMIDE [Concomitant]
     Indication: MULTIPLE MYELOMA
     Dosage: 200 MG, QD
     Route: 048
     Dates: start: 20021022, end: 20050401
  6. DEXAMETHASONE TAB [Concomitant]
     Indication: MULTIPLE MYELOMA
     Dosage: 40 MG, QD FOR 4 DAYS EVERY MONTH
     Dates: start: 20020308, end: 20020819
  7. DURAGESIC-100 [Concomitant]
     Dosage: 75 MCG Q72H
     Dates: start: 20020101
  8. HEPARIN [Concomitant]
     Dosage: 5000 U, BID
     Route: 058
     Dates: start: 20020301
  9. THORAZINE [Concomitant]
     Indication: HICCUPS
     Dosage: 25-50 MG EVERY SIX HOURS
  10. PROTONIX [Concomitant]
     Dosage: 20 MG, QD
  11. VITAMIN D [Concomitant]
  12. PYRIDOXINE HCL [Concomitant]
     Dosage: 50 MG / DAILY
  13. LORATADINE [Concomitant]
  14. CHLORPROMAZINE [Concomitant]
  15. OMEPRAZOLE [Concomitant]
     Dosage: 20 MG / DAILY
  16. AMBIEN [Concomitant]
     Indication: INSOMNIA
     Dosage: 1 DF, QD
     Route: 048
  17. ZOMETA [Suspect]
     Indication: METASTASES TO BONE
     Dosage: 4 MG EVERY 4 WEEKS (MONTHLY)
     Route: 042
     Dates: start: 20020201, end: 20040301
  18. LOVENOX [Concomitant]
     Indication: DEEP VEIN THROMBOSIS
     Dosage: 1MG/KG AT 60MG Q12H
     Dates: start: 20021201
  19. DURAGESIC-100 [Concomitant]
     Dosage: 75 MCG Q72H
     Dates: start: 20020101
  20. ONDANSETRON [Concomitant]
  21. NICARDIPINE HCL [Concomitant]
  22. MIDAZOLAM [Concomitant]
  23. AUGMENTIN '125' [Concomitant]
  24. MILK OF MAGNESIA TAB [Concomitant]
  25. NITROGLYCERIN [Concomitant]
  26. MORPHINE SULFATE [Concomitant]
  27. PNEUMOCOCCAL VACCINE [Concomitant]
  28. PERIDEX [Concomitant]
     Dosage: UNK
  29. PLAVIX [Concomitant]
  30. EUCERIN CREME [Concomitant]
     Dosage: BID
  31. AREDIA [Suspect]
     Dosage: 90 MG, ONCE/SINGLE
     Route: 042
     Dates: start: 20020201, end: 20020201
  32. FENTANYL [Concomitant]
     Indication: PAIN
     Dosage: 75 MCG/HOUR
     Route: 062
     Dates: start: 20020301
  33. ROXICODONE [Concomitant]
     Indication: PAIN
     Dosage: 5-10 MG EVERY 4 HOURS PRN
     Dates: start: 20020301
  34. ATIVAN [Concomitant]
     Indication: ANXIETY
     Dosage: 0.5 MG, PRN
     Dates: start: 20020301
  35. RABEPRAZOLE SODIUM [Concomitant]
     Dosage: 20 MG, QD
     Route: 048
  36. BISACODYL [Concomitant]
  37. CLINDAMYCIN [Concomitant]
  38. DOCUSATE [Concomitant]
     Dosage: 1 DF, QD
     Route: 048
  39. PROTONIX [Concomitant]
     Indication: GASTROOESOPHAGEAL REFLUX DISEASE
     Dosage: 40 MG, QD
     Route: 048
     Dates: start: 20020301
  40. PAROXETINE [Concomitant]
     Dosage: 50 MG, QD
  41. ZANTAC [Concomitant]
     Dosage: 150 MG, Q12H
     Dates: start: 20020415
  42. SENOKOT [Concomitant]
     Dosage: UNK, QD
  43. VANCOMYCIN [Concomitant]
  44. HETASTARCH 6% IN 0.9% SODIUM CHLORIDE IN PLASTIC CONTAINER [Concomitant]
  45. DOPAMINE HCL [Concomitant]
  46. ALTEPLASE [Concomitant]
  47. CLOPIDOGREL BISULFATE [Concomitant]
  48. UNASYN [Concomitant]
  49. ZOCOR [Concomitant]
     Dosage: 1 DF, QD
     Route: 048
  50. VITAMIN B6 [Concomitant]
     Indication: MULTIPLE MYELOMA
     Dosage: 50 MG, QD
     Dates: start: 20021001
  51. VINCRISTINE [Concomitant]
     Indication: MULTIPLE MYELOMA
     Dosage: 1.4 MG/M2 EVERY 4 WEEKS
     Dates: start: 20020301, end: 20020801
  52. DURAGESIC-100 [Concomitant]
     Dosage: 75 MCG Q72H
     Dates: start: 20020101
  53. ALTACE [Concomitant]
     Dosage: 5 MG, QD
     Dates: start: 20020301
  54. ARANESP [Concomitant]
     Dosage: 200 UG, EVERY OTHER WEEK
     Route: 058
  55. CYTOXAN [Concomitant]
     Dosage: UNK
     Dates: start: 20020301, end: 20020801
  56. EPTIFIBATIDE [Concomitant]
  57. PANTOPRAZOLE [Concomitant]
  58. PROTAMINE SULFATE [Concomitant]
  59. EPINEPHRINE [Concomitant]
  60. FUROSEMIDE [Concomitant]
  61. VECURONIUM BROMIDE [Concomitant]
  62. DEXAMETHASONE TAB [Concomitant]
     Dosage: 40 MG QD X 4DAYS Q 2WEEKS
     Dates: start: 20021022, end: 20040201
  63. LISINOPRIL [Concomitant]
     Indication: HYPERTENSION
     Dosage: 20 MG, QD
     Dates: start: 20000101
  64. ESTRADIOL [Concomitant]
     Indication: MULTIPLE MYELOMA
     Dosage: 40 MG/M2 EVERY 4 WEEKS
     Dates: start: 20020301, end: 20020801
  65. DURAGESIC-100 [Concomitant]
     Indication: PAIN
     Dosage: 75 MCG Q72H
     Dates: start: 20020101
  66. SODIUM BICARBONATE [Concomitant]
  67. OXYBUTYNIN [Concomitant]
  68. SENNOSIDES A+B [Concomitant]
  69. OXYCODONE HCL [Concomitant]
     Dosage: 5 MG / 2 TABLETS EVERY 3 HRS AS NEEDED
  70. DEXAMETHASONE TAB [Concomitant]
     Dates: end: 20040201
  71. ADRIAMYCIN PFS [Concomitant]
  72. DURAGESIC-100 [Concomitant]
     Dosage: 75 MCG Q72H
     Dates: start: 20020101
  73. METOPROLOL TARTRATE [Concomitant]
     Dosage: 12.5 MG, Q12H
     Route: 048
     Dates: start: 20020301
  74. PRILOSEC [Concomitant]
     Dosage: 20 MG, QD
     Dates: start: 20020301
  75. MIRALAX [Concomitant]
     Dosage: DAILY, PRN
  76. RIFAMPIN [Concomitant]
  77. MAGNESIUM [Concomitant]
  78. CEFUROXIME [Concomitant]
  79. POTASSIUM CHLORIDE [Concomitant]
  80. GABAPENTIN [Concomitant]
  81. METHYLPREDNISOLONE [Concomitant]
  82. TETANUS TOXOID [Concomitant]
  83. RAMIPRIL [Concomitant]

REACTIONS (100)
  - OSTEOMYELITIS [None]
  - BONE DISORDER [None]
  - WEIGHT DECREASED [None]
  - SINUS DISORDER [None]
  - IMPAIRED HEALING [None]
  - LEUKOENCEPHALOPATHY [None]
  - VOMITING [None]
  - CEREBROVASCULAR ACCIDENT [None]
  - NEUROPATHY PERIPHERAL [None]
  - CHRONIC OBSTRUCTIVE PULMONARY DISEASE [None]
  - ABSCESS JAW [None]
  - DIARRHOEA [None]
  - AGITATION [None]
  - HYPERTENSION [None]
  - RADICULOPATHY [None]
  - GOITRE [None]
  - JAW FRACTURE [None]
  - TONGUE INJURY [None]
  - INSOMNIA [None]
  - MYOCARDIAL INFARCTION [None]
  - TENDONITIS [None]
  - PYREXIA [None]
  - MUSCLE DISORDER [None]
  - BRONCHITIS [None]
  - BACK PAIN [None]
  - INGROWING NAIL [None]
  - SWELLING [None]
  - COMPRESSION FRACTURE [None]
  - DEEP VEIN THROMBOSIS [None]
  - DYSPHAGIA [None]
  - BLOOD CALCIUM DECREASED [None]
  - ACUTE CORONARY SYNDROME [None]
  - CHILLS [None]
  - FAECAL INCONTINENCE [None]
  - EDENTULOUS [None]
  - THROMBOCYTOPENIA [None]
  - PARAPLEGIA [None]
  - GASTROOESOPHAGEAL REFLUX DISEASE [None]
  - CUBITAL TUNNEL SYNDROME [None]
  - SENSORY DISTURBANCE [None]
  - MOBILITY DECREASED [None]
  - LACERATION [None]
  - ARTHRITIS [None]
  - OSTEONECROSIS OF JAW [None]
  - TOOTH LOSS [None]
  - OSTEITIS [None]
  - HYPOPHAGIA [None]
  - PAIN IN JAW [None]
  - LOOSE TOOTH [None]
  - PNEUMONIA [None]
  - PAIN [None]
  - PARAESTHESIA [None]
  - MUSCULAR WEAKNESS [None]
  - AGGRESSION [None]
  - VISUAL IMPAIRMENT [None]
  - VERBAL ABUSE [None]
  - WHEELCHAIR USER [None]
  - PERIODONTAL DISEASE [None]
  - PRIMARY SEQUESTRUM [None]
  - ORAL PAIN [None]
  - CONFUSIONAL STATE [None]
  - GASTRITIS [None]
  - FATIGUE [None]
  - JUGULAR VEIN THROMBOSIS [None]
  - GAIT DISTURBANCE [None]
  - PARALYSIS [None]
  - ANXIETY [None]
  - CERVICAL SPINAL STENOSIS [None]
  - ARTERIOSCLEROSIS [None]
  - DENTAL FISTULA [None]
  - OESOPHAGITIS ULCERATIVE [None]
  - BLOOD POTASSIUM DECREASED [None]
  - ANAEMIA [None]
  - CARPAL TUNNEL SYNDROME [None]
  - SEDATION [None]
  - DEMENTIA [None]
  - BONE LESION [None]
  - ACTINOMYCOSIS [None]
  - ODYNOPHAGIA [None]
  - OCULAR HYPERTENSION [None]
  - ASTHENIA [None]
  - BLOOD ALBUMIN DECREASED [None]
  - CARDIAC FAILURE CONGESTIVE [None]
  - CEREBRAL INFARCTION [None]
  - PROSTHESIS USER [None]
  - NECK PAIN [None]
  - BALANCE DISORDER [None]
  - JAW DISORDER [None]
  - BLOOD GLUCOSE INCREASED [None]
  - CORONARY ARTERY DISEASE [None]
  - DYSPNOEA [None]
  - CELLULITIS [None]
  - URINARY INCONTINENCE [None]
  - SPINAL OSTEOARTHRITIS [None]
  - HIP FRACTURE [None]
  - SKIN DISORDER [None]
  - ANGINA PECTORIS [None]
  - FALL [None]
  - PATHOLOGICAL FRACTURE [None]
  - HYPOAESTHESIA [None]
